FAERS Safety Report 10329121 (Version 3)
Quarter: 2014Q4

REPORT INFORMATION
  Report Type: Spontaneous
  Country: IT (occurrence: IT)
  Receive Date: 20140721
  Receipt Date: 20141115
  Transmission Date: 20150528
  Serious: Yes (Hospitalization)
  Sender: FDA-Public Use
  Company Number: IT-ASTRAZENECA-2014SE50412

PATIENT
  Age: 23365 Day
  Sex: Female

DRUGS (5)
  1. PARACETAMOL [Suspect]
     Active Substance: ACETAMINOPHEN
     Indication: HEADACHE
     Route: 048
     Dates: start: 20140526, end: 20140601
  2. PROPOFOL. [Suspect]
     Active Substance: PROPOFOL
     Indication: OTORHINOLARYNGOLOGICAL SURGERY
     Route: 042
     Dates: start: 20140526, end: 20140526
  3. FENTANEST [Suspect]
     Active Substance: FENTANYL CITRATE
     Indication: OTORHINOLARYNGOLOGICAL SURGERY
     Dosage: 0.1 MG/2ML SOLUTION FOR INJECTION VIALS
     Route: 065
     Dates: start: 20140526, end: 20140526
  4. FORBEST [Suspect]
     Active Substance: FLUNISOLIDE
     Indication: POSTOPERATIVE CARE
     Route: 055
     Dates: start: 20140527, end: 20140603
  5. DIETARY SUPPLEMENTS (NAHRIN SYRUP) [Concomitant]

REACTIONS (3)
  - Urticaria [Recovering/Resolving]
  - Erythema [Recovering/Resolving]
  - Cheilitis [Recovering/Resolving]

NARRATIVE: CASE EVENT DATE: 20140603
